FAERS Safety Report 24344766 (Version 5)
Quarter: 2024Q4

REPORT INFORMATION
  Report Type: Spontaneous
  Country: US (occurrence: US)
  Receive Date: 20240920
  Receipt Date: 20241125
  Transmission Date: 20250114
  Serious: No
  Sender: PFIZER
  Company Number: US-PFIZER INC-PV202400121640

PATIENT
  Age: 79 Year
  Sex: Female

DRUGS (3)
  1. TUKYSA [Suspect]
     Active Substance: TUCATINIB
     Dosage: UNK
  2. TUKYSA [Suspect]
     Active Substance: TUCATINIB
     Dosage: ONE TABLET ONCE DAILY/TAKE 1 TAB PO DAILY 1 150MG FOR 30 DAYS
     Route: 048
  3. CAPECITABINE [Concomitant]
     Active Substance: CAPECITABINE
     Dosage: UNK

REACTIONS (3)
  - Off label use [Unknown]
  - Off label use [Unknown]
  - Gastrointestinal disorder [Unknown]
